FAERS Safety Report 10431047 (Version 1)
Quarter: 2014Q3

REPORT INFORMATION
  Report Type: Spontaneous
  Country: PL (occurrence: PL)
  Receive Date: 20140904
  Receipt Date: 20140904
  Transmission Date: 20150326
  Serious: Yes (Other)
  Sender: FDA-Public Use
  Company Number: PL-WATSON-2014-19767

PATIENT
  Age: 39 Year
  Sex: Female

DRUGS (1)
  1. FIBRISTAL (UNKNOWN) [Suspect]
     Active Substance: ULIPRISTAL
     Indication: UTERINE LEIOMYOMA
     Dosage: 5 MG, DAILY
     Route: 065

REACTIONS (1)
  - Deep vein thrombosis postoperative [Unknown]
